FAERS Safety Report 11915394 (Version 1)
Quarter: 2016Q1

REPORT INFORMATION
  Report Type: Spontaneous
  Country: US (occurrence: US)
  Receive Date: 20160114
  Receipt Date: 20160114
  Transmission Date: 20160526
  Serious: Yes (Other)
  Sender: FDA-Public Use
  Company Number: US-TEVA-554847USA

PATIENT
  Age: 64 Year
  Sex: Female

DRUGS (6)
  1. GLUCERNA [Concomitant]
     Active Substance: AMINO ACIDS\DEXTROSE\ELECTROLYTES NOS\SOYBEAN OIL\VITAMINS
     Dates: start: 201502
  2. NICODERM CQ [Suspect]
     Active Substance: NICOTINE
     Indication: SMOKING CESSATION THERAPY
     Route: 061
     Dates: start: 2012
  3. SEROQUEL [Concomitant]
     Active Substance: QUETIAPINE FUMARATE
  4. METHOTREXATE [Suspect]
     Active Substance: METHOTREXATE
     Indication: RHEUMATOID ARTHRITIS
     Route: 065
  5. VISTARIL [Suspect]
     Active Substance: HYDROXYZINE PAMOATE
     Dates: start: 201412
  6. REMERON [Concomitant]
     Active Substance: MIRTAZAPINE

REACTIONS (3)
  - Lung neoplasm malignant [Unknown]
  - Abnormal loss of weight [Unknown]
  - Lymphoma [Unknown]

NARRATIVE: CASE EVENT DATE: 201503
